FAERS Safety Report 24065331 (Version 1)
Quarter: 2024Q3

REPORT INFORMATION
  Report Type: Report from Study
  Country: JP (occurrence: JP)
  Receive Date: 20240709
  Receipt Date: 20240709
  Transmission Date: 20241016
  Serious: Yes (Other)
  Sender: RANBAXY
  Company Number: JP-SUN PHARMACEUTICAL INDUSTRIES LTD-2024R1-452322

PATIENT
  Age: 55 Year
  Sex: Female

DRUGS (4)
  1. GRANULOCYTE COLONY-STIMULATING FACTOR NOS [Suspect]
     Active Substance: GRANULOCYTE COLONY-STIMULATING FACTOR NOS
     Indication: Product used for unknown indication
     Dosage: UNK
     Route: 065
  2. DOCETAXEL [Suspect]
     Active Substance: DOCETAXEL\DOCETAXEL ANHYDROUS
     Indication: Ovarian cancer
     Dosage: UNK
     Route: 065
  3. CARBOPLATIN [Suspect]
     Active Substance: CARBOPLATIN
     Indication: Ovarian cancer
     Dosage: UNK
     Route: 065
  4. PEGFILGRASTIM [Suspect]
     Active Substance: PEGFILGRASTIM
     Indication: Chemotherapy side effect prophylaxis
     Dosage: 3.6 MILLIGRAM
     Route: 065

REACTIONS (2)
  - Vasculitis [Recovering/Resolving]
  - Aortitis [Recovering/Resolving]
